FAERS Safety Report 8969098 (Version 1)
Quarter: 2012Q4

REPORT INFORMATION
  Report Type: Report from Study
  Country: US (occurrence: US)
  Receive Date: 20121217
  Receipt Date: 20121217
  Transmission Date: 20130627
  Serious: Yes (Hospitalization)
  Sender: FDA-Public Use
  Company Number: US-JNJFOC-20121206551

PATIENT
  Age: 13 Year
  Sex: Male
  Weight: 54.2 kg

DRUGS (9)
  1. REMICADE [Suspect]
     Indication: CROHN^S DISEASE
     Route: 042
     Dates: start: 20100323
  2. REMICADE [Suspect]
     Indication: CROHN^S DISEASE
     Route: 042
     Dates: start: 20120823
  3. PREDNISONE [Concomitant]
  4. AZATHIOPRINE [Concomitant]
  5. OMEPRAZOLE [Concomitant]
  6. CALCIUM W/ D [Concomitant]
  7. AMITRIPTYLINE [Concomitant]
  8. ZINC [Concomitant]
  9. MELATONIN [Concomitant]

REACTIONS (1)
  - Crohn^s disease [Recovered/Resolved]
